FAERS Safety Report 9204122 (Version 2)
Quarter: 2013Q2

REPORT INFORMATION
  Report Type: Spontaneous
  Country: US (occurrence: US)
  Receive Date: 20130402
  Receipt Date: 20130424
  Transmission Date: 20140414
  Serious: Yes (Other)
  Sender: FDA-Public Use
  Company Number: US-BAYER-2013-039515

PATIENT
  Sex: Male

DRUGS (1)
  1. BETASERON [Suspect]
     Dosage: UNK
     Dates: start: 2008, end: 2011

REACTIONS (5)
  - Injection site necrosis [Recovered/Resolved]
  - Injection site bruising [Recovered/Resolved]
  - Impaired healing [Recovered/Resolved]
  - Injection site discomfort [Recovered/Resolved]
  - Skin disorder [Recovered/Resolved]
